FAERS Safety Report 9518988 (Version 1)
Quarter: 2013Q3

REPORT INFORMATION
  Report Type: Spontaneous
  Country: DK (occurrence: DK)
  Receive Date: 20130912
  Receipt Date: 20130912
  Transmission Date: 20140515
  Serious: Yes (Other)
  Sender: FDA-Public Use
  Company Number: DK-ELI_LILLY_AND_COMPANY-DK201309000484

PATIENT
  Age: 33 Year
  Sex: Male

DRUGS (3)
  1. ZYPADHERA [Suspect]
     Indication: BIPOLAR DISORDER
     Dosage: 405 MG, 2/M
     Route: 065
  2. SEROQUEL [Concomitant]
     Indication: BIPOLAR DISORDER
     Dosage: 300 MG, QD
     Route: 065
  3. LITHIUM [Concomitant]
     Indication: BIPOLAR DISORDER
     Dosage: 1200 MG, UNK
     Route: 065

REACTIONS (4)
  - Pulmonary embolism [Recovering/Resolving]
  - Deep vein thrombosis [Recovering/Resolving]
  - Off label use [Recovered/Resolved]
  - Prescribed overdose [Recovered/Resolved]
